FAERS Safety Report 25379743 (Version 1)
Quarter: 2025Q2

REPORT INFORMATION
  Report Type: Spontaneous
  Country: CA (occurrence: None)
  Receive Date: 20250530
  Receipt Date: 20250530
  Transmission Date: 20250716
  Serious: Yes (Disabling)
  Sender: FDA-CTU
  Company Number: None

PATIENT
  Age: 68 Year
  Sex: Female
  Weight: 54 kg

DRUGS (1)
  1. CITALOPRAM [Suspect]
     Active Substance: CITALOPRAM
     Indication: Depression

REACTIONS (10)
  - Depression [None]
  - Insomnia [None]
  - Hyperhidrosis [None]
  - Body temperature fluctuation [None]
  - Alopecia [None]
  - Chills [None]
  - Fatigue [None]
  - Micturition urgency [None]
  - Syncope [None]
  - Burning sensation [None]
